FAERS Safety Report 5057113-3 (Version None)
Quarter: 2006Q3

REPORT INFORMATION
  Report Type: 
  Country: None (occurrence: None)
  Receive Date: 20060721
  Receipt Date: 20051221
  Transmission Date: 20061208
  Serious: No
  Sender: FDA-Public Use
  Company Number: US-AMGEN-US162345

PATIENT
  Sex: Male
  Weight: 47 kg

DRUGS (8)
  1. EPOGEN [Suspect]
     Indication: DIALYSIS
     Route: 042
     Dates: start: 20040317
  2. MEDICINALPRODUCT NOT SPECIFIED BY SENDER [Concomitant]
  3. MEDICINALPRODUCT NOT SPECIFIED BY SENDER [Concomitant]
  4. MEDICINALPRODUCT NOT SPECIFIED BY SENDER [Concomitant]
  5. MEDICINALPRODUCT NOT SPECIFIED BY SENDER [Concomitant]
  6. MEDICINALPRODUCT NOT SPECIFIED BY SENDER [Concomitant]
  7. MEDICINALPRODUCT NOT SPECIFIED BY SENDER [Concomitant]
  8. SENSIPAR [Concomitant]

REACTIONS (3)
  - SEPSIS [None]
  - THERAPEUTIC RESPONSE DECREASED [None]
  - VASCULAR ACCESS COMPLICATION [None]
